FAERS Safety Report 24390505 (Version 2)
Quarter: 2025Q1

REPORT INFORMATION
  Report Type: Report from Study
  Country: MY (occurrence: MY)
  Receive Date: 20241003
  Receipt Date: 20250225
  Transmission Date: 20250408
  Serious: Yes (Death, Other)
  Sender: EXELIXIS
  Company Number: MY-IPSEN Group, Research and Development-2022-15826

PATIENT
  Age: 70 Year
  Sex: Male
  Weight: 51 kg

DRUGS (8)
  1. CABOMETYX [Suspect]
     Active Substance: CABOZANTINIB S-MALATE
     Indication: Hepatocellular carcinoma
     Dosage: 60 MG, QD
     Route: 048
     Dates: start: 20220308
  2. CABOMETYX [Suspect]
     Active Substance: CABOZANTINIB S-MALATE
     Dosage: 60 MG, QD
     Route: 048
     Dates: start: 20230711
  3. CABOMETYX [Suspect]
     Active Substance: CABOZANTINIB S-MALATE
     Dosage: 60 MG, QD
     Route: 048
  4. CABOMETYX [Suspect]
     Active Substance: CABOZANTINIB S-MALATE
     Route: 048
     Dates: end: 20240611
  5. CABOMETYX [Suspect]
     Active Substance: CABOZANTINIB S-MALATE
     Dosage: 60 MG, QD
     Route: 048
     Dates: end: 20250106
  6. LERCANIDIPINE [Concomitant]
     Active Substance: LERCANIDIPINE
     Indication: Hypertension
     Dosage: 20 MG, QD
     Route: 048
  7. TELMISARTAN [Concomitant]
     Active Substance: TELMISARTAN
     Indication: Hypertension
     Dosage: 80 MG, QD
     Route: 048
  8. PRAZOSIN [Concomitant]
     Active Substance: PRAZOSIN
     Indication: Hypertension
     Dosage: 0.5 MG, QD
     Route: 048

REACTIONS (11)
  - Tongue ulceration [Recovering/Resolving]
  - Blister [Recovering/Resolving]
  - Protein urine present [Not Recovered/Not Resolved]
  - Platelet count decreased [Not Recovered/Not Resolved]
  - Protein urine present [Unknown]
  - Diarrhoea [Recovering/Resolving]
  - Metastases to lung [Fatal]
  - Proteinuria [Recovering/Resolving]
  - Platelet count decreased [Unknown]
  - Pain [Unknown]
  - Off label use [Unknown]

NARRATIVE: CASE EVENT DATE: 20240611
